FAERS Safety Report 6140655-7 (Version None)
Quarter: 2009Q2

REPORT INFORMATION
  Report Type: 
  Country: None (occurrence: None)
  Receive Date: 20090402
  Receipt Date: 20090325
  Transmission Date: 20091009
  Serious: Yes (Other)
  Sender: FDA-Public Use
  Company Number: US-ROXANE LABORATORIES, INC.-2009-RO-00289RO

PATIENT
  Age: 26 Year
  Sex: Male

DRUGS (7)
  1. ONDANSETRON [Suspect]
     Indication: PROPHYLAXIS OF NAUSEA AND VOMITING
     Dosage: 4MG
     Route: 042
  2. MIDAZOLAM HCL [Suspect]
     Indication: ANALGESIC INTERVENTION SUPPORTIVE THERAPY
     Dosage: 2MG
     Route: 042
  3. LORAZEPAM [Suspect]
     Indication: ANALGESIC INTERVENTION SUPPORTIVE THERAPY
     Dosage: 2MG
     Route: 042
  4. PROPOFOL [Suspect]
     Indication: GENERAL ANAESTHESIA
  5. DESFLURANE [Suspect]
     Indication: GENERAL ANAESTHESIA
  6. BUPIVACAINE [Suspect]
     Indication: PAIN PROPHYLAXIS
     Dosage: 5ML
  7. DIPHENHYDRAMINE HCL [Suspect]
     Indication: ANALGESIC INTERVENTION SUPPORTIVE THERAPY
     Dosage: 25MG
     Route: 042

REACTIONS (4)
  - DRUG INEFFECTIVE [None]
  - EXTRAPYRAMIDAL DISORDER [None]
  - MYOCLONUS [None]
  - OPISTHOTONUS [None]
